FAERS Safety Report 6940244-8 (Version None)
Quarter: 2010Q3

REPORT INFORMATION
  Report Type: 
  Country: None (occurrence: None)
  Receive Date: 20100825
  Receipt Date: 20100813
  Transmission Date: 20110219
  Serious: Yes (Other)
  Sender: FDA-Public Use
  Company Number: US-ELI_LILLY_AND_COMPANY-US201008004425

PATIENT
  Sex: Female

DRUGS (3)
  1. HUMALOG [Suspect]
     Indication: TYPE 2 DIABETES MELLITUS
     Dosage: UNK, 3/D
  2. HUMALOG [Suspect]
     Dosage: UNK, 3/D
  3. INSULIN [Concomitant]

REACTIONS (2)
  - CAROTID ARTERY DISEASE [None]
  - VISUAL ACUITY REDUCED [None]
